FAERS Safety Report 14928478 (Version 2)
Quarter: 2018Q2

REPORT INFORMATION
  Report Type: Spontaneous
  Country: GB (occurrence: GB)
  Receive Date: 20180523
  Receipt Date: 20180601
  Transmission Date: 20180711
  Serious: Yes (Hospitalization, Other)
  Sender: FDA-Public Use
  Company Number: GB-MYLANLABS-2017M1031419

PATIENT
  Age: 34 Year
  Sex: Male

DRUGS (1)
  1. CLOZARIL [Suspect]
     Active Substance: CLOZAPINE
     Indication: SCHIZOPHRENIA
     Dosage: UNK
     Route: 048
     Dates: start: 20111208

REACTIONS (4)
  - Alcohol abuse [Unknown]
  - Differential white blood cell count abnormal [Not Recovered/Not Resolved]
  - Social problem [Unknown]
  - Poisoning [Unknown]

NARRATIVE: CASE EVENT DATE: 20170522
